FAERS Safety Report 7955196-1 (Version None)
Quarter: 2011Q4

REPORT INFORMATION
  Report Type: 
  Country: None (occurrence: None)
  Receive Date: 20111202
  Receipt Date: 20111128
  Transmission Date: 20120403
  Serious: Yes (Hospitalization, Disabling, Other)
  Sender: FDA-Public Use
  Company Number: PHEH2009US16955

PATIENT
  Sex: Male

DRUGS (71)
  1. FOLIC ACID [Concomitant]
     Dosage: 1 MG, UNK
  2. GLUCOTROL [Concomitant]
  3. NEUPOGEN [Concomitant]
  4. DOXYCYCLA [Concomitant]
  5. VALTREX [Concomitant]
  6. FLUCONAZOLE [Concomitant]
  7. MUPIROCIN [Concomitant]
  8. INSULIN [Concomitant]
  9. SIMVASTATIN [Concomitant]
  10. ZOMETA [Suspect]
     Indication: MULTIPLE MYELOMA
     Dates: start: 20061018, end: 20080101
  11. ZOMETA [Suspect]
     Indication: METASTASES TO BONE
  12. ATROP [Concomitant]
     Dosage: 2.5 MG, UNK
  13. POTASSIUM CHLORIDE [Concomitant]
     Dosage: 10 MEQ, UNK
  14. ACCUPRIL [Concomitant]
  15. HYDROCODONE [Concomitant]
  16. HUMIBID [Concomitant]
  17. TUSSIONEX [Concomitant]
  18. FAMVIR [Concomitant]
  19. ARANESP [Concomitant]
  20. TARCEVA [Concomitant]
  21. ZETIA [Concomitant]
  22. NEXIUM [Concomitant]
  23. ALIMTA [Concomitant]
  24. NAVELBINE [Concomitant]
  25. CHLORHEXIDINE GLUCONATE [Concomitant]
  26. LANTUS [Concomitant]
  27. BENZONATATE [Concomitant]
  28. GUAIFED-PD [Concomitant]
  29. QUINAPRIL [Concomitant]
  30. AZMACORT [Concomitant]
  31. CYCLOBENZAPRINE [Concomitant]
  32. SERTRALINE HYDROCHLORIDE [Concomitant]
  33. AVAPRO [Concomitant]
     Dosage: 150 MG, UNK
  34. ZOVIRAX [Concomitant]
  35. LIPITOR [Concomitant]
  36. ZYRTEC [Concomitant]
  37. PROTONIX [Concomitant]
  38. ZITHROMAX [Concomitant]
  39. VYTORIN [Concomitant]
  40. METRONIDAZOLE [Concomitant]
  41. LIDOCAINE [Concomitant]
  42. FUROSEMIDE [Concomitant]
     Dosage: 40 MG, UNK
  43. OXYCODONE HCL [Concomitant]
  44. PROMETHAZINE W/ CODEINE [Concomitant]
  45. PROCHLORPERAZINE [Concomitant]
  46. LOPROX [Concomitant]
  47. CIPROFLOXACIN [Concomitant]
  48. ALPRAZOLAM [Concomitant]
     Dosage: 0.5 MG, UNK
  49. DEXAMETHASONE [Concomitant]
     Dosage: 4 MG, UNK
  50. ACTOS [Concomitant]
  51. AUGMENTIN [Concomitant]
  52. LEVAQUIN [Concomitant]
  53. ATACAND [Concomitant]
  54. NAPROXEN [Concomitant]
  55. PREDNISOLONE ACETATE [Concomitant]
  56. ONDANSETRON [Concomitant]
  57. CLINDAMYCIN [Concomitant]
     Dosage: 150 MG, UNK
  58. PENICILLIN VK [Concomitant]
     Dosage: 500 MG, UNK
  59. ADVANTAGE [Concomitant]
  60. NASONEX [Concomitant]
  61. DUONEB [Concomitant]
  62. LORAZEPAM [Concomitant]
  63. METOPROLOL TARTRATE [Concomitant]
  64. NOVOBIOCIN [Concomitant]
  65. CARISOPRODOL [Concomitant]
     Dosage: 350 MG, UNK
  66. FLOMAX [Concomitant]
  67. CEPHALEXIN [Concomitant]
  68. PHENAZOPYRIDINE HCL TAB [Concomitant]
  69. HYDROMORPHONE HCL [Concomitant]
  70. FINASTERIDE [Concomitant]
  71. DURAGESIC-100 [Concomitant]

REACTIONS (72)
  - OSTEONECROSIS OF JAW [None]
  - BACK PAIN [None]
  - UTERINE MASS [None]
  - DEPRESSION [None]
  - CARDIAC TAMPONADE [None]
  - ANXIETY [None]
  - PAIN IN EXTREMITY [None]
  - PARONYCHIA [None]
  - NAUSEA [None]
  - ARTHRALGIA [None]
  - IMPAIRED HEALING [None]
  - HYDROURETER [None]
  - RENAL FAILURE [None]
  - GASTROENTERITIS RADIATION [None]
  - CORONARY ARTERY DISEASE [None]
  - SEPSIS [None]
  - FIBULA FRACTURE [None]
  - NEPHROLITHIASIS [None]
  - ALOPECIA [None]
  - LEUKOPENIA [None]
  - HAEMATURIA [None]
  - INGUINAL HERNIA [None]
  - ATELECTASIS [None]
  - JAW FRACTURE [None]
  - BLOOD URINE PRESENT [None]
  - PERIODONTITIS [None]
  - DYSPHAGIA [None]
  - GAIT DISTURBANCE [None]
  - DYSPEPSIA [None]
  - DYSURIA [None]
  - PAIN [None]
  - SWELLING [None]
  - HYDROCELE [None]
  - NEUROPATHY PERIPHERAL [None]
  - EMPHYSEMA [None]
  - BULLOUS LUNG DISEASE [None]
  - PENILE INFECTION [None]
  - INSOMNIA [None]
  - ABDOMINAL PAIN [None]
  - CONSTIPATION [None]
  - ROTATOR CUFF SYNDROME [None]
  - INGROWING NAIL [None]
  - ANAEMIA [None]
  - EPISTAXIS [None]
  - ASCITES [None]
  - TOOTH LOSS [None]
  - DENTAL CARIES [None]
  - VOMITING [None]
  - FALL [None]
  - SPLEEN DISORDER [None]
  - DIVERTICULUM INTESTINAL [None]
  - LYMPHOEDEMA [None]
  - RADICULOPATHY [None]
  - INJURY [None]
  - BONE EROSION [None]
  - ANHEDONIA [None]
  - GROIN PAIN [None]
  - PROSTATOMEGALY [None]
  - PROSTATE CANCER METASTATIC [None]
  - TESTICULAR PAIN [None]
  - NECK PAIN [None]
  - PERIPHERAL VASCULAR DISORDER [None]
  - URETERAL NEOPLASM [None]
  - EXPOSED BONE IN JAW [None]
  - TOOTH ABSCESS [None]
  - HYPOAESTHESIA [None]
  - PANCYTOPENIA [None]
  - HYDRONEPHROSIS [None]
  - ARTERIOSCLEROSIS [None]
  - FEMUR FRACTURE [None]
  - RENAL COLIC [None]
  - URETHRAL OBSTRUCTION [None]
